FAERS Safety Report 7305342-8 (Version None)
Quarter: 2011Q1

REPORT INFORMATION
  Report Type: 
  Country: None (occurrence: None)
  Receive Date: 20110222
  Receipt Date: 20110209
  Transmission Date: 20110831
  Serious: Yes (Other)
  Sender: FDA-Public Use
  Company Number: PHHY2011US10740

PATIENT
  Sex: Female

DRUGS (7)
  1. SIMVASTATIN [Concomitant]
  2. PROMETRIUM [Concomitant]
  3. VITAMIN D [Concomitant]
  4. ESTROPIPATE [Concomitant]
     Dosage: EVERY OTHER DAY
  5. EXFORGE [Suspect]
     Dosage: 160 MG, 1 TABLET PER DAY, VALS AND 5 MG AMLO
     Route: 048
     Dates: start: 20110119, end: 20110125
  6. CALCIUM [Concomitant]
  7. ASPIRIN [Concomitant]

REACTIONS (7)
  - NAUSEA [None]
  - ASTHENIA [None]
  - HEAD DISCOMFORT [None]
  - UPPER RESPIRATORY TRACT INFECTION [None]
  - BLOOD PRESSURE INCREASED [None]
  - DIZZINESS [None]
  - POLLAKIURIA [None]
